FAERS Safety Report 5951896-3 (Version None)
Quarter: 2008Q4

REPORT INFORMATION
  Report Type: 
  Country: None (occurrence: None)
  Receive Date: 20081113
  Receipt Date: 20081030
  Transmission Date: 20090506
  Serious: Yes (Hospitalization)
  Sender: FDA-Public Use
  Company Number: US-SOLVAY-00208005179

PATIENT
  Sex: Male
  Weight: 132 kg

DRUGS (2)
  1. ANDROGEL [Suspect]
     Indication: DRUG USE FOR UNKNOWN INDICATION
     Dosage: DAILY DOSE: 5 GRAM(S)
     Route: 062
  2. ANDROGEL [Suspect]
     Dosage: DAILY DOSE: 5 GRAM(S)
     Route: 062
     Dates: start: 20081027

REACTIONS (4)
  - FULL BLOOD COUNT ABNORMAL [None]
  - INFLUENZA [None]
  - NAUSEA [None]
  - WEIGHT DECREASED [None]
